FAERS Safety Report 9434581 (Version 1)
Quarter: 2013Q3

REPORT INFORMATION
  Report Type: Spontaneous
  Country: US (occurrence: US)
  Receive Date: 20130801
  Receipt Date: 20130801
  Transmission Date: 20140515
  Serious: No
  Sender: FDA-Public Use
  Company Number: US-PFIZER INC-2013221629

PATIENT
  Age: 2 Decade
  Sex: Female

DRUGS (3)
  1. QUILLIVANT XR [Suspect]
     Indication: ATTENTION DEFICIT/HYPERACTIVITY DISORDER
     Dosage: 20 MG, UNK
  2. QUILLIVANT XR [Suspect]
     Dosage: 25 MG, UNK
  3. QUILLIVANT XR [Suspect]
     Dosage: 20 MG, UNK

REACTIONS (1)
  - Emotional disorder [Not Recovered/Not Resolved]
